FAERS Safety Report 6242681-6 (Version None)
Quarter: 2009Q2

REPORT INFORMATION
  Report Type: 
  Country: None (occurrence: None)
  Receive Date: 20090617
  Receipt Date: 20080618
  Transmission Date: 20091009
  Serious: No
  Sender: FDA-Public Use
  Company Number: 276554

PATIENT
  Age: 68 Year
  Sex: Female

DRUGS (2)
  1. LEVEMIR [Suspect]
     Indication: TYPE 1 DIABETES MELLITUS
     Dosage: 16 IU, QD, SUBCUTANEOUS ; 12 IU, QD, SUBCUTANEOUS
     Route: 058
  2. NOVOLOG [Suspect]
     Indication: TYPE 1 DIABETES MELLITUS
     Dosage: 26 IU, QD, SUBCUTANEOUS ; 12 IU, QD, SUBCUTANEOUS ; 14 IU, QD, SUBCUTANEOUS
     Route: 058

REACTIONS (2)
  - BLOOD GLUCOSE INCREASED [None]
  - LACERATION [None]
